FAERS Safety Report 21395922 (Version 7)
Quarter: 2023Q2

REPORT INFORMATION
  Report Type: Report from Study
  Country: ES (occurrence: ES)
  Receive Date: 20220930
  Receipt Date: 20230412
  Transmission Date: 20230722
  Serious: Yes (Hospitalization)
  Sender: FDA-Public Use
  Company Number: ES-ASTELLAS-2022US034906

PATIENT
  Age: 79 Year
  Sex: Male

DRUGS (13)
  1. ENFORTUMAB VEDOTIN [Suspect]
     Active Substance: ENFORTUMAB VEDOTIN
     Indication: Transitional cell carcinoma
     Dosage: 1.25 MG/KG ON DAYS 1 AND 8 OF EACH 3-WEEK CYCLE
     Route: 042
     Dates: start: 20220422
  2. ENFORTUMAB VEDOTIN [Suspect]
     Active Substance: ENFORTUMAB VEDOTIN
     Dosage: 1 MG/KG ON DAYS 1 AND 8 OF EACH 3-WEEK CYCLE
     Route: 042
  3. PEMBROLIZUMAB [Suspect]
     Active Substance: PEMBROLIZUMAB
     Indication: Transitional cell carcinoma
     Dosage: 200 MG ON DAY 1 OF EACH 3-WEEK CYCLE
     Route: 042
     Dates: start: 20220422
  4. CALCIUM CARBONATE [Concomitant]
     Active Substance: CALCIUM CARBONATE
     Indication: Rash pruritic
     Dosage: UNK UNK, UNKNOWN FREQ.
     Route: 048
     Dates: start: 20220708
  5. BISOPROLOL FUMARATE [Concomitant]
     Active Substance: BISOPROLOL FUMARATE
     Indication: Immune-mediated myocarditis
     Dosage: UNK UNK, UNKNOWN FREQ.
     Route: 048
     Dates: start: 20220708
  6. BETAMETHASONE [Concomitant]
     Active Substance: BETAMETHASONE
     Indication: Toxic skin eruption
     Dosage: UNK UNK, UNKNOWN FREQ.
     Route: 061
  7. HYDROXYZINE [Concomitant]
     Active Substance: HYDROXYZINE HYDROCHLORIDE
     Indication: Toxic skin eruption
     Dosage: UNK UNK, UNKNOWN FREQ.
     Route: 048
     Dates: start: 20220503
  8. CETIRIZINE [Concomitant]
     Active Substance: CETIRIZINE HYDROCHLORIDE
     Indication: Toxic skin eruption
     Dosage: UNK UNK, UNKNOWN FREQ.
     Route: 048
     Dates: start: 20220503
  9. GEMFIBROZIL [Concomitant]
     Active Substance: GEMFIBROZIL
     Indication: Dyslipidaemia
     Dosage: UNK UNK, UNKNOWN FREQ.
     Route: 048
  10. ALLOPURINOL [Concomitant]
     Active Substance: ALLOPURINOL
     Indication: Prophylaxis
     Dosage: UNK UNK, UNKNOWN FREQ.
     Route: 048
     Dates: start: 2022
  11. ALDACTONE [Concomitant]
     Active Substance: SPIRONOLACTONE
     Indication: Hypertension
     Dosage: UNK UNK, UNKNOWN FREQ.
     Route: 048
  12. PREDNISONE [Concomitant]
     Active Substance: PREDNISONE
     Indication: Product used for unknown indication
     Route: 065
     Dates: start: 20220905, end: 20220918
  13. PREDNISONE [Concomitant]
     Active Substance: PREDNISONE
     Route: 065
     Dates: start: 20220919, end: 20220921

REACTIONS (1)
  - Immune-mediated hepatitis [Recovered/Resolved]

NARRATIVE: CASE EVENT DATE: 20220921
